FAERS Safety Report 16219962 (Version 1)
Quarter: 2019Q2

REPORT INFORMATION
  Report Type: Spontaneous
  Country: GB (occurrence: GB)
  Receive Date: 20190420
  Receipt Date: 20190420
  Transmission Date: 20190711
  Serious: Yes (Other)
  Sender: FDA-Public Use
  Company Number: GB-ACCORD-122998

PATIENT
  Age: 74 Year
  Sex: Male

DRUGS (12)
  1. DONEPEZIL/DONEPEZIL HYDROCHLORIDE [Suspect]
     Active Substance: DONEPEZIL HYDROCHLORIDE
     Indication: PRODUCT USED FOR UNKNOWN INDICATION
  2. LACTULOSE. [Concomitant]
     Active Substance: LACTULOSE
     Dosage: ONE DAILY
     Route: 048
     Dates: start: 20181119
  3. ANUSOL HC [Concomitant]
     Active Substance: HYDROCORTISONE
     Dosage: APPLY AFTER EVERY BOWEL MOTION FOR THE NEXT 10 DAYS
     Dates: start: 20181119
  4. E45 [Concomitant]
     Active Substance: LANOLIN\LIGHT MINERAL OIL\PARAFFIN
     Indication: DRY SKIN
     Route: 061
     Dates: start: 20181106
  5. METHOTREXATE. [Concomitant]
     Active Substance: METHOTREXATE
     Dates: start: 20181115
  6. VITAMIN B [Concomitant]
     Active Substance: VITAMIN B
     Dates: start: 20181030, end: 20181030
  7. FOLIC ACID. [Concomitant]
     Active Substance: FOLIC ACID
     Dosage: EXCEPT ON MONDAYS
     Dates: start: 20181115
  8. PARACETAMOL [Concomitant]
     Active Substance: ACETAMINOPHEN
     Dosage: 1 TO 2 UP TO FOUR TIMES DAILY
     Dates: start: 20181106, end: 20181121
  9. SUDOCREM [Concomitant]
     Active Substance: LANOLIN\ZINC OXIDE
     Dosage: APPLY
     Dates: start: 20181106
  10. CALCICHEW D3 [Concomitant]
     Active Substance: CALCIUM\CHOLECALCIFEROL
     Dates: start: 20181115
  11. METFORMIN [Concomitant]
     Active Substance: METFORMIN HYDROCHLORIDE
     Dates: start: 20181115
  12. RISPERIDONE. [Concomitant]
     Active Substance: RISPERIDONE
     Dates: start: 20181119

REACTIONS (2)
  - Abnormal behaviour [Unknown]
  - Hyperthyroidism [Unknown]
